FAERS Safety Report 13208679 (Version 1)
Quarter: 2017Q1

REPORT INFORMATION
  Report Type: Spontaneous
  Country: US (occurrence: US)
  Receive Date: 20170209
  Receipt Date: 20170209
  Transmission Date: 20170428
  Serious: No
  Sender: FDA-Public Use
  Company Number: US-ROCHE-1710951

PATIENT
  Sex: Female

DRUGS (3)
  1. BENADRYL [Concomitant]
     Active Substance: DIPHENHYDRAMINE HYDROCHLORIDE
  2. XOLAIR [Suspect]
     Active Substance: OMALIZUMAB
     Indication: CHRONIC SPONTANEOUS URTICARIA
     Dosage: 300MG EVERY 4 WEEKS
     Route: 058
     Dates: start: 20160128
  3. TYLENOL #2 (UNITED STATES) [Concomitant]

REACTIONS (3)
  - Headache [Unknown]
  - Pruritus [Unknown]
  - Blood pressure increased [Unknown]
